FAERS Safety Report 14854688 (Version 1)
Quarter: 2018Q2

REPORT INFORMATION
  Report Type: Spontaneous
  Country: CN (occurrence: CN)
  Receive Date: 20180507
  Receipt Date: 20180507
  Transmission Date: 20180711
  Serious: Yes (Hospitalization)
  Sender: FDA-Public Use
  Company Number: CN-PFIZER INC-2018183017

PATIENT
  Age: 26 Year
  Sex: Male

DRUGS (2)
  1. PI FU PING [Suspect]
     Active Substance: IFOSFAMIDE
     Indication: NEOPLASM
     Dosage: 3 G, 1X/DAY
     Route: 041
     Dates: start: 20180308, end: 20180310
  2. EPIRUBICIN HCL [Suspect]
     Active Substance: EPIRUBICIN HYDROCHLORIDE
     Indication: NEOPLASM
     Dosage: 40 MG, 1X/DAY
     Route: 041
     Dates: start: 20180308, end: 20180308

REACTIONS (1)
  - Bone marrow transplant rejection [Recovering/Resolving]

NARRATIVE: CASE EVENT DATE: 20180316
